FAERS Safety Report 18653001 (Version 1)
Quarter: 2020Q4

REPORT INFORMATION
  Report Type: Spontaneous
  Country: IT (occurrence: IT)
  Receive Date: 20201223
  Receipt Date: 20201223
  Transmission Date: 20210114
  Serious: Yes (Hospitalization, Other)
  Sender: FDA-Public Use
  Company Number: IT-AUROBINDO-AUR-APL-2020-062221

PATIENT
  Age: 54 Year
  Sex: Male

DRUGS (5)
  1. DEPAKIN CHRONO [Concomitant]
     Active Substance: VALPROIC ACID
     Indication: BIPOLAR DISORDER
     Dosage: 1 DOSAGE FORM, ONCE A DAY
     Route: 048
  2. RESILIENT [Concomitant]
     Active Substance: LITHIUM SULFATE
     Indication: BIPOLAR DISORDER
     Dosage: 1 DOSAGE FORM, ONCE A DAY
     Route: 048
  3. BROTIZOLAM [Suspect]
     Active Substance: BROTIZOLAM
     Indication: PRODUCT USED FOR UNKNOWN INDICATION
     Dosage: 1 MILLIGRAM, TOTAL
     Route: 048
     Dates: start: 20190607, end: 20190607
  4. ZOLPIDEM [Suspect]
     Active Substance: ZOLPIDEM TARTRATE
     Indication: PRODUCT USED FOR UNKNOWN INDICATION
     Dosage: 30 MILLIGRAM, TOTAL
     Route: 048
     Dates: start: 20190607, end: 20190607
  5. EFEXOR [Concomitant]
     Active Substance: VENLAFAXINE HYDROCHLORIDE
     Indication: BIPOLAR DISORDER
     Dosage: 1 DOSAGE FORM, ONCE A DAY
     Route: 048

REACTIONS (6)
  - Sopor [Recovering/Resolving]
  - Vomiting [Recovering/Resolving]
  - Bradyphrenia [Recovering/Resolving]
  - Self-injurious ideation [Recovering/Resolving]
  - Drug abuse [Recovering/Resolving]
  - Nausea [Recovering/Resolving]

NARRATIVE: CASE EVENT DATE: 20190607
